FAERS Safety Report 24449901 (Version 1)
Quarter: 2024Q4

REPORT INFORMATION
  Report Type: Spontaneous
  Country: CN (occurrence: CN)
  Receive Date: 20241017
  Receipt Date: 20241017
  Transmission Date: 20250114
  Serious: Yes (Hospitalization)
  Sender: JOHNSON AND JOHNSON
  Company Number: CN-JNJFOC-20241035708

PATIENT
  Age: 55 Year
  Sex: Male
  Weight: 88.6 kg

DRUGS (6)
  1. TOPAMAX [Suspect]
     Active Substance: TOPIRAMATE
     Indication: Emotional disorder
     Dosage: 50 MG/DAY
     Route: 048
     Dates: start: 20240828, end: 20240908
  2. TOPAMAX [Suspect]
     Active Substance: TOPIRAMATE
     Dosage: GRADUALLY INCREASED TO 75 MG AT NOON AND IN THE EVENING AND 50 MG IN THE EVENING
     Route: 048
     Dates: start: 20240909, end: 20241001
  3. RISPERIDONE [Suspect]
     Active Substance: RISPERIDONE
     Indication: Behaviour disorder
     Dosage: 1 MG TWICE DAILY
     Route: 048
     Dates: start: 20240828, end: 20240927
  4. RISPERIDONE [Suspect]
     Active Substance: RISPERIDONE
     Dosage: REDUCED 1 MG DAILY
     Route: 048
     Dates: start: 20240928, end: 20240928
  5. SERTRALINE HYDROCHLORIDE [Suspect]
     Active Substance: SERTRALINE HYDROCHLORIDE
     Indication: Compulsions
     Dosage: 50 MG/MORNING
     Route: 048
     Dates: start: 20240828, end: 20240930
  6. BENZBROMARONE [Suspect]
     Active Substance: BENZBROMARONE
     Indication: Hyperuricaemia
     Route: 048
     Dates: start: 20240828, end: 20240928

REACTIONS (2)
  - Agranulocytosis [Recovered/Resolved]
  - Off label use [Unknown]

NARRATIVE: CASE EVENT DATE: 20240828
